FAERS Safety Report 13165493 (Version 4)
Quarter: 2017Q2

REPORT INFORMATION
  Report Type: Report from Study
  Country: US (occurrence: US)
  Receive Date: 20170131
  Receipt Date: 20170622
  Transmission Date: 20170830
  Serious: Yes (Hospitalization, Other)
  Sender: FDA-Public Use
  Company Number: PHEH2017US002675

PATIENT
  Age: 39 Year
  Sex: Female
  Weight: 117.1 kg

DRUGS (1)
  1. GILENYA [Suspect]
     Active Substance: FINGOLIMOD HYDROCHLORIDE
     Indication: MULTIPLE SCLEROSIS
     Dosage: 0.5 MG, QD
     Route: 048
     Dates: start: 20151207

REACTIONS (9)
  - Stress [Unknown]
  - Generalised oedema [Unknown]
  - Multiple sclerosis relapse [Unknown]
  - Hot flush [Unknown]
  - Hyperhidrosis [Unknown]
  - Nervousness [Unknown]
  - Dyspnoea [Unknown]
  - Malaise [Unknown]
  - Chest discomfort [Unknown]

NARRATIVE: CASE EVENT DATE: 201705
